FAERS Safety Report 5466071-9 (Version None)
Quarter: 2007Q3

REPORT INFORMATION
  Report Type: 
  Country: None (occurrence: None)
  Receive Date: 20070919
  Receipt Date: 20070829
  Transmission Date: 20080115
  Serious: Yes (Hospitalization)
  Sender: FDA-Public Use
  Company Number: 2007-01392

PATIENT
  Sex: Female

DRUGS (4)
  1. VELCADE [Suspect]
     Indication: MYELODYSPLASTIC SYNDROME
     Dosage: 2.28 MG,
     Dates: start: 20070416, end: 20070426
  2. CYTARABINE [Suspect]
     Indication: MYELODYSPLASTIC SYNDROME
     Dosage: 15.00 MG;
     Dates: start: 20070416, end: 20070429
  3. CYTARABINE [Suspect]
  4. CYTARABINE [Suspect]

REACTIONS (3)
  - HAEMORRHOIDAL HAEMORRHAGE [None]
  - PETECHIAE [None]
  - THROMBOCYTOPENIA [None]
